FAERS Safety Report 8644357 (Version 2)
Quarter: 2013Q2

REPORT INFORMATION
  Report Type: Spontaneous
  Country: FR (occurrence: FR)
  Receive Date: 20120629
  Receipt Date: 20130408
  Transmission Date: 20140414
  Serious: Yes (Other)
  Sender: FDA-Public Use
  Company Number: FR-CELGENEUS-056-FK228-12063269

PATIENT
  Sex: 0

DRUGS (5)
  1. ROMIDEPSIN [Suspect]
     Indication: T-CELL LYMPHOMA
     Dosage: ESCALATING DOSES
     Route: 065
  2. CYCLOPHOSPHAMIDE [Concomitant]
     Indication: T-CELL LYMPHOMA
     Route: 065
  3. DOXORUBICINE [Concomitant]
     Indication: T-CELL LYMPHOMA
     Route: 065
  4. VINCRISTINE [Concomitant]
     Indication: T-CELL LYMPHOMA
     Route: 065
  5. PREDNISONE [Concomitant]
     Indication: T-CELL LYMPHOMA
     Route: 065

REACTIONS (13)
  - Haematotoxicity [Unknown]
  - Neutropenia [Unknown]
  - Thrombocytopenia [Unknown]
  - General physical health deterioration [Unknown]
  - Electrocardiogram QT prolonged [Unknown]
  - Malaise [Unknown]
  - Hepatic enzyme increased [Unknown]
  - Dyspepsia [Unknown]
  - T-cell lymphoma [Unknown]
  - Acute pulmonary oedema [Unknown]
  - Acute coronary syndrome [Unknown]
  - Deep vein thrombosis [Unknown]
  - Arrhythmia [Unknown]
